FAERS Safety Report 4263874-3 (Version None)
Quarter: 2004Q1

REPORT INFORMATION
  Report Type: 
  Country: None (occurrence: None)
  Receive Date: 20040102
  Receipt Date: 20031219
  Transmission Date: 20041129
  Serious: Yes (Hospitalization)
  Sender: FDA-Public Use
  Company Number: 2003191627GB

PATIENT
  Age: 50 Year
  Sex: Female

DRUGS (4)
  1. EPIRUBICIN HCL [Suspect]
     Indication: BREAST CANCER
     Dosage: 146 MG, CYCLIC, IV
     Route: 042
     Dates: start: 20030917, end: 20030917
  2. CYCLOPHOSPHAMIDE [Suspect]
     Indication: BREAST CANCER
     Dosage: 978 MG, CYLIC, IV
     Route: 042
     Dates: start: 20030917, end: 20030917
  3. PACLITAXEL [Suspect]
     Indication: BREAST CANCER
     Dosage: 285 MG, CYCLIC, IV
     Route: 042
     Dates: start: 20031008, end: 20031008
  4. GEMCITABINE (GEMCITABINE) [Suspect]
     Indication: BREAST CANCER
     Dosage: 2000 MG, CYCLIC, IV
     Route: 042
     Dates: start: 20031015, end: 20031015

REACTIONS (2)
  - INFLUENZA LIKE ILLNESS [None]
  - PYREXIA [None]
